FAERS Safety Report 8042512-8 (Version None)
Quarter: 2012Q1

REPORT INFORMATION
  Report Type: 
  Country: None (occurrence: None)
  Receive Date: 20120112
  Receipt Date: 20111228
  Transmission Date: 20120608
  Serious: Yes (Death)
  Sender: FDA-Public Use
  Company Number: US-UCBSA-049300

PATIENT
  Age: 45 Year
  Sex: Female

DRUGS (10)
  1. TOPIRAMATE [Suspect]
     Route: 048
  2. FLUOXETINE [Suspect]
     Route: 048
  3. ACETAMINOPHEN/DIPHENHYDRAMINE [Suspect]
     Route: 048
  4. DIPHENHYDRAMINE HCL [Suspect]
     Route: 048
  5. CLONAZEPAM [Suspect]
     Route: 048
  6. ACETAMINOPHEN WITH PROPOXYPHENE HCL TAB [Suspect]
     Route: 048
  7. LAMOTRIGINE [Suspect]
     Route: 048
  8. ACETAMINOPHEN AND HYDROCODONE BITARTRATE [Suspect]
     Route: 048
  9. PREGABALIN [Suspect]
     Route: 048
  10. PRAMIPEXOLE DIHYCHLLORIDE [Suspect]
     Route: 048

REACTIONS (1)
  - TOXICITY TO VARIOUS AGENTS [None]
